FAERS Safety Report 18794899 (Version 2)
Quarter: 2021Q1

REPORT INFORMATION
  Report Type: Spontaneous
  Country: ES (occurrence: ES)
  Receive Date: 20210127
  Receipt Date: 20210210
  Transmission Date: 20210419
  Serious: Yes (Hospitalization, Other)
  Sender: FDA-Public Use
  Company Number: ES-BRISTOL-MYERS SQUIBB COMPANY-BMS-2021-002391

PATIENT
  Age: 86 Year
  Sex: Female

DRUGS (2)
  1. COVID?19 VACCINE NOS. [Interacting]
     Active Substance: COVID-19 VACCINE NOS
     Indication: COVID-19 IMMUNISATION
     Dosage: 0.3 MILLILITER, TOTAL DAILY DOSE
     Route: 030
     Dates: start: 20210105, end: 20210105
  2. ELIQUIS [Suspect]
     Active Substance: APIXABAN
     Indication: CEREBROVASCULAR ACCIDENT PROPHYLAXIS
     Dosage: 2.5 MILLIGRAM, BID
     Route: 048
     Dates: start: 20201211

REACTIONS (3)
  - Drug interaction [Unknown]
  - Pleural effusion [Unknown]
  - Haematoma muscle [Unknown]

NARRATIVE: CASE EVENT DATE: 202101
